FAERS Safety Report 18128932 (Version 5)
Quarter: 2021Q2

REPORT INFORMATION
  Report Type: Spontaneous
  Country: US (occurrence: US)
  Receive Date: 20200810
  Receipt Date: 20210614
  Transmission Date: 20210717
  Serious: No
  Sender: FDA-Public Use
  Company Number: US-PFIZER INC-2020301153

PATIENT
  Age: 73 Year
  Sex: Male

DRUGS (2)
  1. INLYTA [Suspect]
     Active Substance: AXITINIB
     Dosage: 5 MG
  2. INLYTA [Suspect]
     Active Substance: AXITINIB
     Dosage: 10 MG

REACTIONS (8)
  - Weight decreased [Unknown]
  - Pain [Unknown]
  - Dysphonia [Unknown]
  - Hypoacusis [Unknown]
  - Glossodynia [Unknown]
  - Hypertension [Unknown]
  - Oropharyngeal pain [Unknown]
  - Renal disorder [Unknown]
